FAERS Safety Report 18988584 (Version 2)
Quarter: 2021Q1

REPORT INFORMATION
  Report Type: Spontaneous
  Country: FR (occurrence: FR)
  Receive Date: 20210309
  Receipt Date: 20210326
  Transmission Date: 20210420
  Serious: Yes (Hospitalization)
  Sender: FDA-Public Use
  Company Number: FR-PFIZER INC-2021226243

PATIENT
  Age: 74 Year
  Sex: Female

DRUGS (7)
  1. CARBOPLATIN. [Concomitant]
     Active Substance: CARBOPLATIN
     Indication: NON-SMALL CELL LUNG CANCER
     Dosage: 420 MG
     Route: 042
     Dates: start: 20200713, end: 20200825
  2. ATEZOLIZUMAB. [Suspect]
     Active Substance: ATEZOLIZUMAB
     Indication: NON-SMALL CELL LUNG CANCER
     Dosage: 1200 MG
     Route: 042
     Dates: start: 20200713, end: 20201126
  3. NICARDIPINE [Concomitant]
     Active Substance: NICARDIPINE
     Indication: HYPERTENSION
     Dosage: 100 MG, 1X/DAY
     Route: 048
     Dates: start: 20201217
  4. PEMETREXED. [Concomitant]
     Active Substance: PEMETREXED
     Indication: NON-SMALL CELL LUNG CANCER
     Dosage: 700 MG, CYCLE 1 TO 5
     Route: 042
     Dates: start: 20200713, end: 20201015
  5. BEVACIZUMAB. [Suspect]
     Active Substance: BEVACIZUMAB
     Indication: NON-SMALL CELL LUNG CANCER
     Dosage: 15 MG/KG, CYCLE 1 TO 8
     Route: 042
     Dates: start: 20200713, end: 20201126
  6. CARBOPLATIN. [Concomitant]
     Active Substance: CARBOPLATIN
     Dosage: 410 MG
     Route: 042
     Dates: start: 20200916, end: 20200916
  7. PEMETREXED. [Concomitant]
     Active Substance: PEMETREXED
     Dosage: 525 MG, CYCLE 6 TO 8
     Route: 042
     Dates: start: 20201105, end: 20201217

REACTIONS (2)
  - COVID-19 [Recovering/Resolving]
  - Ischaemic stroke [Not Recovered/Not Resolved]

NARRATIVE: CASE EVENT DATE: 20201219
